FAERS Safety Report 5776799-9 (Version None)
Quarter: 2008Q2

REPORT INFORMATION
  Report Type: 
  Country: None (occurrence: None)
  Receive Date: 20080618
  Receipt Date: 20080508
  Transmission Date: 20081010
  Serious: No
  Sender: FDA-Public Use
  Company Number: US-ASTRAZENECA-2008UW09427

PATIENT
  Age: 45 Year
  Sex: Female

DRUGS (1)
  1. SYMBICORT [Suspect]
     Indication: ASTHMA
     Dosage: 160/4.5 UG TWO INHALATIONS
     Route: 055

REACTIONS (3)
  - COUGH [None]
  - ORAL DISCOMFORT [None]
  - PHARYNGEAL OEDEMA [None]
